FAERS Safety Report 9360932 (Version 1)
Quarter: 2013Q2

REPORT INFORMATION
  Report Type: Report from Study
  Country: US (occurrence: US)
  Receive Date: 20130621
  Receipt Date: 20130621
  Transmission Date: 20140414
  Serious: Yes (Hospitalization, Other)
  Sender: FDA-Public Use
  Company Number: US-ABBOTT-13P-163-1100616-00

PATIENT
  Age: 40 Year
  Sex: Male

DRUGS (2)
  1. HUMIRA [Suspect]
     Indication: PSORIATIC ARTHROPATHY
     Dates: start: 20090311
  2. METHOTREXATE [Concomitant]
     Indication: PSORIATIC ARTHROPATHY
     Dates: start: 201204

REACTIONS (6)
  - Erythema [Recovered/Resolved]
  - Staphylococcal infection [Recovered/Resolved]
  - Pain in extremity [Recovered/Resolved]
  - Cellulitis [Recovered/Resolved]
  - Drug effect decreased [Not Recovered/Not Resolved]
  - Psoriasis [Not Recovered/Not Resolved]
